FAERS Safety Report 7711491-2 (Version None)
Quarter: 2011Q3

REPORT INFORMATION
  Report Type: 
  Country: None (occurrence: None)
  Receive Date: 20110823
  Receipt Date: 20110810
  Transmission Date: 20111222
  Serious: Yes (Other)
  Sender: FDA-Public Use
  Company Number: 2011184271

PATIENT
  Age: 77 Year
  Sex: Female

DRUGS (1)
  1. FRAGMIN [Suspect]
     Indication: BONE OPERATION
     Dosage: 5000 IU, 2XDAY, SUBCUTANEOUS
     Route: 058

REACTIONS (2)
  - ADRENAL INSUFFICIENCY [None]
  - HEPARIN-INDUCED THROMBOCYTOPENIA [None]
